FAERS Safety Report 26140440 (Version 1)
Quarter: 2025Q4

REPORT INFORMATION
  Report Type: Spontaneous
  Country: GB (occurrence: GB)
  Receive Date: 20251210
  Receipt Date: 20251210
  Transmission Date: 20260118
  Serious: Yes (Other)
  Sender: IDORSIA PHARMACEUTICALS
  Company Number: None

PATIENT
  Age: 55 Year
  Sex: Male
  Weight: 118 kg

DRUGS (5)
  1. QUVIVIQ [Suspect]
     Active Substance: DARIDOREXANT
     Indication: Insomnia
     Dosage: 25 MG, TABLET
     Route: 065
     Dates: start: 20251201, end: 20251202
  2. DIAZEPAM [Concomitant]
     Active Substance: DIAZEPAM
  3. MOUNJARO [Concomitant]
     Active Substance: TIRZEPATIDE
  4. LITHIUM CARBONATE [Concomitant]
     Active Substance: LITHIUM CARBONATE
  5. DAPAGLIFLOZIN [Concomitant]
     Active Substance: DAPAGLIFLOZIN

REACTIONS (1)
  - Paralysis [Recovered/Resolved with Sequelae]

NARRATIVE: CASE EVENT DATE: 20251201
